FAERS Safety Report 21110853 (Version 4)
Quarter: 2023Q1

REPORT INFORMATION
  Report Type: Report from Study
  Country: US (occurrence: US)
  Receive Date: 20220721
  Receipt Date: 20230128
  Transmission Date: 20230418
  Serious: Yes (Hospitalization, Other)
  Sender: FDA-Public Use
  Company Number: US-TAKEDA-2021TUS042877

PATIENT
  Sex: Female
  Weight: 68.027 kg

DRUGS (80)
  1. HUMAN C1-ESTERASE INHIBITOR [Suspect]
     Active Substance: HUMAN C1-ESTERASE INHIBITOR
     Indication: Immune system disorder
     Dosage: 1000 INTERNATIONAL UNIT, Q72H
     Route: 042
     Dates: start: 20210324
  2. HUMAN C1-ESTERASE INHIBITOR [Suspect]
     Active Substance: HUMAN C1-ESTERASE INHIBITOR
     Indication: Immune system disorder
     Dosage: 1000 INTERNATIONAL UNIT, Q72H
     Route: 042
     Dates: start: 20210324
  3. HUMAN C1-ESTERASE INHIBITOR [Suspect]
     Active Substance: HUMAN C1-ESTERASE INHIBITOR
     Indication: Immune system disorder
     Dosage: 1000 INTERNATIONAL UNIT, Q72H
     Route: 042
     Dates: start: 20210324
  4. HUMAN C1-ESTERASE INHIBITOR [Suspect]
     Active Substance: HUMAN C1-ESTERASE INHIBITOR
     Indication: Immunodeficiency common variable
     Dosage: 1000 INTERNATIONAL UNIT, 2/WEEK
     Route: 042
     Dates: start: 20210410
  5. HUMAN C1-ESTERASE INHIBITOR [Suspect]
     Active Substance: HUMAN C1-ESTERASE INHIBITOR
     Indication: Immunodeficiency common variable
     Dosage: 1000 INTERNATIONAL UNIT, 2/WEEK
     Route: 042
     Dates: start: 20210410
  6. HUMAN C1-ESTERASE INHIBITOR [Suspect]
     Active Substance: HUMAN C1-ESTERASE INHIBITOR
     Indication: Immunodeficiency common variable
     Dosage: 1000 INTERNATIONAL UNIT, 2/WEEK
     Route: 042
     Dates: start: 20210410
  7. HUMAN C1-ESTERASE INHIBITOR [Suspect]
     Active Substance: HUMAN C1-ESTERASE INHIBITOR
     Indication: B-lymphocyte abnormalities
     Dosage: 1000 INTERNATIONAL UNIT, Q72H
     Route: 042
     Dates: start: 20210410
  8. HUMAN C1-ESTERASE INHIBITOR [Suspect]
     Active Substance: HUMAN C1-ESTERASE INHIBITOR
     Indication: B-lymphocyte abnormalities
     Dosage: 1000 INTERNATIONAL UNIT, Q72H
     Route: 042
     Dates: start: 20210410
  9. HUMAN C1-ESTERASE INHIBITOR [Suspect]
     Active Substance: HUMAN C1-ESTERASE INHIBITOR
     Indication: B-lymphocyte abnormalities
     Dosage: 1000 INTERNATIONAL UNIT, Q72H
     Route: 042
     Dates: start: 20210410
  10. HUMAN C1-ESTERASE INHIBITOR [Suspect]
     Active Substance: HUMAN C1-ESTERASE INHIBITOR
     Indication: Asthma
     Dosage: 1000 INTERNATIONAL UNIT, Q72H
     Route: 042
     Dates: start: 20210410
  11. HUMAN C1-ESTERASE INHIBITOR [Suspect]
     Active Substance: HUMAN C1-ESTERASE INHIBITOR
     Indication: Asthma
     Dosage: 1000 INTERNATIONAL UNIT, Q72H
     Route: 042
     Dates: start: 20210410
  12. HUMAN C1-ESTERASE INHIBITOR [Suspect]
     Active Substance: HUMAN C1-ESTERASE INHIBITOR
     Indication: Asthma
     Dosage: 1000 INTERNATIONAL UNIT, Q72H
     Route: 042
     Dates: start: 20210410
  13. OCTAGAM IMMUNE GLOBULIN (HUMAN) [Suspect]
     Active Substance: HUMAN IMMUNOGLOBULIN G
     Indication: Product used for unknown indication
     Dosage: UNK
     Route: 065
  14. RUCONEST [Suspect]
     Active Substance: HUMAN C1-ESTERASE INHIBITOR
     Indication: Immune system disorder
     Dosage: 4200 INTERNATIONAL UNIT
     Route: 042
     Dates: start: 20210324
  15. RUCONEST [Suspect]
     Active Substance: HUMAN C1-ESTERASE INHIBITOR
     Indication: Immunodeficiency common variable
  16. RUCONEST [Suspect]
     Active Substance: HUMAN C1-ESTERASE INHIBITOR
     Indication: B-lymphocyte abnormalities
  17. SODIUM CHLORIDE [Suspect]
     Active Substance: SODIUM CHLORIDE
     Indication: Product used for unknown indication
     Dosage: UNK
     Route: 065
  18. ACETAMINOPHEN [Concomitant]
     Active Substance: ACETAMINOPHEN
  19. DIPHENHYDRAMINE [Concomitant]
     Active Substance: DIPHENHYDRAMINE
  20. HEPARIN [Concomitant]
     Active Substance: HEPARIN SODIUM
  21. ONDANSETRON [Concomitant]
     Active Substance: ONDANSETRON
  22. EPINEPHRINE [Concomitant]
     Active Substance: EPINEPHRINE
  23. Lmx [Concomitant]
  24. SOLU-MEDROL [Concomitant]
     Active Substance: METHYLPREDNISOLONE SODIUM SUCCINATE
  25. BUPROPION [Concomitant]
     Active Substance: BUPROPION
  26. METHYLPREDNISOLONE [Concomitant]
     Active Substance: METHYLPREDNISOLONE
  27. PROTONIX [Concomitant]
     Active Substance: PANTOPRAZOLE SODIUM
  28. ALBUTEROL [Concomitant]
     Active Substance: ALBUTEROL
  29. TRIMETHYLGLYCINE [Concomitant]
  30. HYDROXYCHLOROQUINE [Concomitant]
     Active Substance: HYDROXYCHLOROQUINE
  31. ELURYNG [Concomitant]
     Active Substance: ETHINYL ESTRADIOL\ETONOGESTREL
  32. DOXYCYCLINE [Concomitant]
     Active Substance: DOXYCYCLINE
  33. CLOBETASOL [Concomitant]
     Active Substance: CLOBETASOL
  34. CROMOLYN [Concomitant]
     Active Substance: CROMOLYN
  35. WELLBUTRIN [Concomitant]
     Active Substance: BUPROPION HYDROCHLORIDE
  36. VALACYCLOVIR [Concomitant]
     Active Substance: VALACYCLOVIR HYDROCHLORIDE
  37. ANUCORT-HC [Concomitant]
     Active Substance: HYDROCORTISONE ACETATE
  38. MONTELUKAST [Concomitant]
     Active Substance: MONTELUKAST SODIUM
  39. DAPSONE [Concomitant]
     Active Substance: DAPSONE
  40. COENZYME Q10 [Concomitant]
     Active Substance: DIETARY SUPPLEMENT\UBIDECARENONE
  41. TRIAMCINOLONE [Concomitant]
     Active Substance: TRIAMCINOLONE
  42. KETOPROFEN [Concomitant]
     Active Substance: KETOPROFEN
  43. CLARITIN-D NOS [Concomitant]
     Active Substance: LORATADINE\PSEUDOEPHEDRINE SULFATE
  44. XYZAL [Concomitant]
     Active Substance: LEVOCETIRIZINE DIHYDROCHLORIDE
  45. ALLEGRA [Concomitant]
     Active Substance: FEXOFENADINE HYDROCHLORIDE
  46. ZYRTEC [Concomitant]
     Active Substance: CETIRIZINE HYDROCHLORIDE
  47. NALTREXONE [Concomitant]
     Active Substance: NALTREXONE
  48. DEXAMETHASONE [Concomitant]
     Active Substance: DEXAMETHASONE
  49. TRULANCE [Concomitant]
     Active Substance: PLECANATIDE
  50. CARAFATE [Concomitant]
     Active Substance: SUCRALFATE
  51. PROBIOTICS NOS [Concomitant]
     Active Substance: PROBIOTICS NOS
  52. CANNABIS SATIVA FLOWERING TOP [Concomitant]
     Active Substance: CANNABIS SATIVA FLOWERING TOP
  53. Nac [Concomitant]
  54. Detox [Concomitant]
     Dosage: UNK
     Route: 065
  55. LECITHIN [Concomitant]
     Active Substance: LECITHIN
     Route: 065
  56. S acetylglutathion [Concomitant]
     Route: 065
  57. Zymogen [Concomitant]
  58. BENADRYL [Concomitant]
     Active Substance: DIPHENHYDRAMINE HYDROCHLORIDE
  59. STERILE WATER [Concomitant]
     Active Substance: WATER
  60. TAGAMET [Concomitant]
     Active Substance: CIMETIDINE
  61. ZOFRAN [Concomitant]
     Active Substance: ONDANSETRON HYDROCHLORIDE
  62. SODIUM CHLORIDE [Concomitant]
     Active Substance: SODIUM CHLORIDE
  63. ELIXIR COLICO [Concomitant]
  64. ACETONIDE DE FLUCLOROLONE [Concomitant]
  65. TREXONE [Concomitant]
  66. LIDOCAINE [Concomitant]
     Active Substance: LIDOCAINE
  67. XOLAIR [Concomitant]
     Active Substance: OMALIZUMAB
  68. DIPHENHYDRAMINE HYDROCHLORIDE [Concomitant]
     Active Substance: DIPHENHYDRAMINE HYDROCHLORIDE
  69. METHYLPREDNISOLONE ACETATE [Concomitant]
     Active Substance: METHYLPREDNISOLONE ACETATE
  70. HYDROXYCHLOROQUINE SULFATE [Concomitant]
     Active Substance: HYDROXYCHLOROQUINE SULFATE
  71. AZITHROMYCIN [Concomitant]
     Active Substance: AZITHROMYCIN
  72. TRIAMCINOLONE ACETONIDE [Concomitant]
     Active Substance: TRIAMCINOLONE ACETONIDE
  73. NALTREXONE HYDROCHLORIDE [Concomitant]
     Active Substance: NALTREXONE HYDROCHLORIDE
  74. XARELTO [Concomitant]
     Active Substance: RIVAROXABAN
  75. BUPROPION HYDROCHLORIDE [Concomitant]
     Active Substance: BUPROPION HYDROCHLORIDE
  76. DOXYCYCLINE HYCLATE [Concomitant]
     Active Substance: DOXYCYCLINE HYCLATE
  77. ALBUTEROL SULFATE [Concomitant]
     Active Substance: ALBUTEROL SULFATE
  78. HYDROXYZINE HYDROCHLORIDE [Concomitant]
     Active Substance: HYDROXYZINE HYDROCHLORIDE
  79. PFIZER-BIONTECH COVID-19 VACCINE [Concomitant]
     Active Substance: TOZINAMERAN
     Dosage: UNK
  80. HYDROXYZINE [Concomitant]
     Active Substance: HYDROXYZINE HYDROCHLORIDE

REACTIONS (19)
  - Infusion site extravasation [Unknown]
  - Device related thrombosis [Unknown]
  - Asthma [Unknown]
  - COVID-19 [Unknown]
  - Nasal congestion [Recovered/Resolved]
  - Ear congestion [Recovered/Resolved]
  - Infusion related reaction [Unknown]
  - Upper respiratory tract infection [Unknown]
  - Fatigue [Unknown]
  - Pain [Unknown]
  - Migraine [Unknown]
  - Arthralgia [Unknown]
  - Dermatitis contact [Unknown]
  - Hypotension [Unknown]
  - Hereditary angioedema [Unknown]
  - Headache [Unknown]
  - Nausea [Unknown]
  - Dizziness [Unknown]
  - Device occlusion [Unknown]
